FAERS Safety Report 7309604-X (Version None)
Quarter: 2011Q1

REPORT INFORMATION
  Report Type: 
  Country: None (occurrence: None)
  Receive Date: 20110223
  Receipt Date: 20110218
  Transmission Date: 20110831
  Serious: Yes (Other)
  Sender: FDA-Public Use
  Company Number: GB-BRISTOL-MYERS SQUIBB COMPANY-15558810

PATIENT
  Age: 58 Year
  Sex: Female

DRUGS (10)
  1. FOSINOPRIL SODIUM [Suspect]
  2. VALSARTAN [Concomitant]
     Dates: start: 20090715
  3. GLIMEPIRIDE [Concomitant]
     Dates: start: 20090715
  4. DOXAZOSIN [Concomitant]
     Dates: start: 20090715
  5. ANTIDIABETIC PRODUCT [Concomitant]
     Dates: start: 20090715
  6. CARVEDILOL [Concomitant]
     Dates: start: 20090715
  7. AMLODIPINE BESILATE + LISINOPRIL [Concomitant]
     Dates: start: 20090715
  8. FUROSEMIDE [Concomitant]
     Dates: start: 20090715
  9. ARANESP [Suspect]
     Indication: ANAEMIA
  10. FERROUS SULFATE TAB [Concomitant]
     Dates: start: 20090715

REACTIONS (1)
  - ANAEMIA [None]
